FAERS Safety Report 9778443 (Version 4)
Quarter: 2014Q4

REPORT INFORMATION
  Report Type: Spontaneous
  Country: US (occurrence: None)
  Receive Date: 20131219
  Receipt Date: 20141112
  Transmission Date: 20150529
  Serious: Yes (Death)
  Sender: FDA-Public Use
  Company Number: 2013-US-004158

PATIENT
  Age: 71 Year
  Sex: Male

DRUGS (1)
  1. XYREM [Suspect]
     Active Substance: SODIUM OXYBATE
     Indication: NARCOLEPSY
     Route: 048
     Dates: start: 200812, end: 2009

REACTIONS (2)
  - Treatment noncompliance [None]
  - Death [None]

NARRATIVE: CASE EVENT DATE: 20131202
